FAERS Safety Report 9927694 (Version 1)
Quarter: 2014Q1

REPORT INFORMATION
  Report Type: Report from Study
  Country: US (occurrence: US)
  Receive Date: 20140227
  Receipt Date: 20140227
  Transmission Date: 20141002
  Serious: Yes (Other)
  Sender: FDA-Public Use
  Company Number: US-ROCHE-1343591

PATIENT
  Sex: Female

DRUGS (8)
  1. LUCENTIS [Suspect]
     Indication: CHOROIDAL NEOVASCULARISATION
     Route: 050
  2. LUCENTIS [Suspect]
     Route: 050
     Dates: start: 20110602
  3. LUCENTIS [Suspect]
     Route: 050
     Dates: start: 20110707
  4. LUCENTIS [Suspect]
     Route: 050
     Dates: start: 20110811
  5. AVASTIN [Suspect]
     Indication: PRODUCT USED FOR UNKNOWN INDICATION
     Route: 050
  6. TIMOLOL [Concomitant]
     Route: 065
  7. TRAVATAN [Concomitant]
     Dosage: QHS
     Route: 065
  8. BESIVANCE [Concomitant]
     Route: 065

REACTIONS (7)
  - Staphyloma [Unknown]
  - Eye pruritus [Unknown]
  - Off label use [Unknown]
  - Photopsia [Unknown]
  - Vitreous floaters [Unknown]
  - Foreign body sensation in eyes [Unknown]
  - Ocular discomfort [Unknown]
